FAERS Safety Report 12200707 (Version 5)
Quarter: 2016Q3

REPORT INFORMATION
  Report Type: Spontaneous
  Country: US (occurrence: US)
  Receive Date: 20160322
  Receipt Date: 20160722
  Transmission Date: 20161109
  Serious: Yes (Death, Life-Threatening, Other)
  Sender: FDA-Public Use
  Company Number: US-BAYER-2016-050581

PATIENT
  Age: 75 Year
  Sex: Female
  Weight: 59.41 kg

DRUGS (1)
  1. GADAVIST [Suspect]
     Active Substance: GADOBUTROL
     Indication: ARTERIOGRAM CAROTID
     Dosage: 6.5 ML, ONCE
     Route: 042
     Dates: start: 20160314, end: 20160314

REACTIONS (10)
  - Nausea [Not Recovered/Not Resolved]
  - Dyspnoea [Not Recovered/Not Resolved]
  - Hypoaesthesia [Not Recovered/Not Resolved]
  - Hyperhidrosis [Not Recovered/Not Resolved]
  - Respiratory arrest [Fatal]
  - Idiosyncratic drug reaction [Fatal]
  - Cardiac arrest [Fatal]
  - Skin warm [Not Recovered/Not Resolved]
  - Unresponsive to stimuli [Not Recovered/Not Resolved]
  - Off label use [None]

NARRATIVE: CASE EVENT DATE: 20160314
